FAERS Safety Report 7880581-6 (Version None)
Quarter: 2011Q4

REPORT INFORMATION
  Report Type: 
  Country: None (occurrence: None)
  Receive Date: 20111101
  Receipt Date: 20111021
  Transmission Date: 20120403
  Serious: Yes (Death, Other)
  Sender: FDA-Public Use
  Company Number: JP-ROCHE-1007008

PATIENT
  Sex: Female

DRUGS (5)
  1. PEON [Concomitant]
     Indication: RHEUMATOID ARTHRITIS
     Route: 048
  2. AZULFIDINE [Concomitant]
     Indication: RHEUMATOID ARTHRITIS
     Route: 048
  3. MUCOSTA [Concomitant]
     Route: 048
  4. ACTEMRA [Suspect]
     Indication: RHEUMATOID ARTHRITIS
     Route: 041
     Dates: start: 20081126
  5. FAMOSTAGINE [Concomitant]
     Route: 048

REACTIONS (2)
  - NEOPLASM MALIGNANT [None]
  - DEATH [None]
